FAERS Safety Report 13823478 (Version 2)
Quarter: 2017Q3

REPORT INFORMATION
  Report Type: Spontaneous
  Country: DE (occurrence: DE)
  Receive Date: 20170802
  Receipt Date: 20170904
  Transmission Date: 20171127
  Serious: Yes (Hospitalization)
  Sender: FDA-Public Use
  Company Number: DE-BIOGEN-2017BI00439293

PATIENT
  Age: 38 Year
  Sex: Female
  Weight: 110 kg

DRUGS (5)
  1. TECFIDERA [Suspect]
     Active Substance: DIMETHYL FUMARATE
     Route: 048
     Dates: start: 20170518, end: 20170726
  2. TECFIDERA [Suspect]
     Active Substance: DIMETHYL FUMARATE
     Indication: MULTIPLE SCLEROSIS
     Dosage: MAINTENANCE DOSE
     Route: 048
     Dates: start: 201702, end: 20170503
  3. VENLAFAXIN [Concomitant]
     Active Substance: VENLAFAXINE HYDROCHLORIDE
     Indication: MAJOR DEPRESSION
     Route: 048
     Dates: start: 2016
  4. DEKRISTOL [Concomitant]
     Active Substance: CHOLECALCIFEROL
     Indication: PRODUCT USED FOR UNKNOWN INDICATION
     Dosage: 20,000 IE
     Route: 065
  5. VENLAFAXIN [Concomitant]
     Active Substance: VENLAFAXINE HYDROCHLORIDE
     Route: 065

REACTIONS (15)
  - Fatigue [Unknown]
  - Flatulence [Unknown]
  - Hepatic function abnormal [Recovered/Resolved]
  - Autoimmune disorder [Unknown]
  - Infection [Unknown]
  - Pancreatic steatosis [Unknown]
  - Obesity [Unknown]
  - Nausea [Unknown]
  - Hypotonia [Unknown]
  - Pollakiuria [Unknown]
  - Splenomegaly [Unknown]
  - Bowel movement irregularity [Unknown]
  - Blood cholesterol increased [Unknown]
  - Hepatic steatosis [Unknown]
  - Flushing [Unknown]

NARRATIVE: CASE EVENT DATE: 201707
